FAERS Safety Report 14587006 (Version 1)
Quarter: 2018Q1

REPORT INFORMATION
  Report Type: Spontaneous
  Country: US (occurrence: US)
  Receive Date: 20180228
  Receipt Date: 20180228
  Transmission Date: 20180509
  Serious: No
  Sender: FDA-Public Use
  Company Number: None

PATIENT
  Age: 62 Year
  Sex: Female

DRUGS (1)
  1. GATTEX [Suspect]
     Active Substance: TEDUGLUTIDE\WATER
     Indication: MALABSORPTION
     Dosage: 0.245ML (2.45MG) SUBCUTANEOUSLY DAILY
     Route: 058
     Dates: start: 20171220

REACTIONS (7)
  - Abdominal distension [None]
  - Pruritus [None]
  - Nausea [None]
  - Urticaria [None]
  - Drug dose omission [None]
  - Abdominal pain [None]
  - Vomiting [None]

NARRATIVE: CASE EVENT DATE: 20180101
